FAERS Safety Report 5228317-1 (Version None)
Quarter: 2007Q1

REPORT INFORMATION
  Report Type: 
  Country: None (occurrence: None)
  Receive Date: 20070131
  Receipt Date: 20070131
  Transmission Date: 20070707
  Serious: No
  Sender: FDA-Public Use
  Company Number: None

PATIENT
  Age: 40 Year
  Sex: Male
  Weight: 56 kg

DRUGS (7)
  1. DILAUDID [Suspect]
     Indication: PAIN MANAGEMENT
     Dosage: 1 MG PRN PAIN WITH DRESSING CHANGE IV
     Route: 042
     Dates: start: 20061101, end: 20061104
  2. LACTOBACILLUS [Concomitant]
  3. PROTONIX [Concomitant]
  4. RISPERDAL [Concomitant]
  5. ZOSYN [Concomitant]
  6. ZITHROMAXX [Concomitant]
  7. TOBRAMYCIN [Concomitant]

REACTIONS (1)
  - RASH [None]
